FAERS Safety Report 8111908-8 (Version None)
Quarter: 2012Q1

REPORT INFORMATION
  Report Type: 
  Country: None (occurrence: None)
  Receive Date: 20120203
  Receipt Date: 20110224
  Transmission Date: 20120608
  Serious: No
  Sender: FDA-Public Use
  Company Number: US-GLAXOSMITHKLINE-A0915292A

PATIENT
  Age: 57 Year
  Sex: Female

DRUGS (2)
  1. ARIXTRA [Suspect]
     Indication: THERAPEUTIC PROCEDURE
     Dosage: 7.5MG PER DAY
     Route: 058
     Dates: start: 20101224
  2. DEMEROL [Concomitant]

REACTIONS (4)
  - INJECTION SITE RASH [None]
  - URTICARIA [None]
  - DECREASED APPETITE [None]
  - PRURITUS [None]
